FAERS Safety Report 9355005 (Version 2)
Quarter: 2014Q1

REPORT INFORMATION
  Report Type: Spontaneous
  Country: US (occurrence: US)
  Receive Date: 20130619
  Receipt Date: 20140206
  Transmission Date: 20141002
  Serious: No
  Sender: FDA-Public Use
  Company Number: US-BIOGENIDEC-2013BI054241

PATIENT
  Sex: Female

DRUGS (1)
  1. TYSABRI [Suspect]
     Indication: MULTIPLE SCLEROSIS
     Route: 042
     Dates: start: 20101007

REACTIONS (7)
  - Cognitive disorder [Unknown]
  - Personality change [Unknown]
  - Memory impairment [Unknown]
  - General symptom [Unknown]
  - Gait disturbance [Unknown]
  - Personality disorder [Unknown]
  - Drug ineffective [Unknown]
